FAERS Safety Report 6675777 (Version 20)
Quarter: 2012Q4

REPORT INFORMATION
  Report Type: 
  Country: US (occurrence: US)
  Receive Date: 20080623
  Receipt Date: 20121227
  Transmission Date: 20130627
  Serious: Yes (Hospitalization, Congenital Anomaly, Other)
  Sender: FDA-Public Use
  Company Number: US-PFIZER INC-2008049846

PATIENT
  Sex: Female
  Weight: 3.62 kg

DRUGS (7)
  1. ZOLOFT [Suspect]
     Indication: ANXIETY
     Dosage: 50 mg, 1x/day
     Route: 064
     Dates: start: 200211
  2. ZOLOFT [Suspect]
     Indication: DEPRESSION
  3. BUSPAR [Concomitant]
     Dosage: 7.5 mg, as needed
     Route: 064
  4. TUMS [Concomitant]
     Dosage: UNK
     Route: 064
  5. RHOGAM [Concomitant]
     Dosage: UNK
     Route: 064
  6. PRENATAL VITAMINS [Concomitant]
     Dosage: UNK
     Route: 064
  7. DESOGEN [Concomitant]
     Dosage: UNK
     Route: 064

REACTIONS (14)
  - Foetal exposure during pregnancy [Unknown]
  - Supravalvular aortic stenosis [Recovered/Resolved]
  - Cardiac murmur [Unknown]
  - Atrial septal defect [Unknown]
  - Aortic valve incompetence [Unknown]
  - Cellulitis [Unknown]
  - Osteomyelitis [Unknown]
  - Meningitis bacterial [Unknown]
  - Convulsion [Unknown]
  - Gross motor delay [Unknown]
  - Aortic dilatation [Unknown]
  - Hyponatraemia [Unknown]
  - Developmental delay [Unknown]
  - Speech disorder developmental [Unknown]
